FAERS Safety Report 9771407 (Version 1)
Quarter: 2013Q4

REPORT INFORMATION
  Report Type: Spontaneous
  Country: US (occurrence: US)
  Receive Date: 20131219
  Receipt Date: 20131219
  Transmission Date: 20140711
  Serious: Yes (Other)
  Sender: FDA-Public Use
  Company Number: US-AMGEN-USASP2013088387

PATIENT
  Age: 44 Year
  Sex: Male

DRUGS (1)
  1. ENBREL [Suspect]
     Indication: ANKYLOSING SPONDYLITIS
     Dosage: 50 MG, 2 TIMES/WK
     Route: 065
     Dates: start: 20040924

REACTIONS (6)
  - Spinal fracture [Recovered/Resolved]
  - Condition aggravated [Not Recovered/Not Resolved]
  - Bone density decreased [Recovered/Resolved]
  - Skin disorder [Not Recovered/Not Resolved]
  - Vitamin D deficiency [Recovered/Resolved]
  - Injection site swelling [Not Recovered/Not Resolved]
